FAERS Safety Report 8033669-3 (Version None)
Quarter: 2012Q1

REPORT INFORMATION
  Report Type: 
  Country: None (occurrence: None)
  Receive Date: 20120110
  Receipt Date: 20120106
  Transmission Date: 20120608
  Serious: No
  Sender: FDA-Public Use
  Company Number: US-B.I. PHARMACEUTICALS,INC./RIDGEFIELD-2012-BP-00349BP

PATIENT
  Sex: Male

DRUGS (7)
  1. MICARDIS [Concomitant]
     Indication: HYPERTENSION
     Route: 048
  2. PREDNISONE TAB [Concomitant]
     Indication: CYSTITIS NONINFECTIVE
     Dosage: 20 MG
     Route: 048
     Dates: start: 20111201, end: 20111201
  3. MULTI-VITAMIN [Concomitant]
     Indication: CYSTITIS NONINFECTIVE
     Route: 048
  4. LIPITOR [Concomitant]
     Indication: HYPERLIPIDAEMIA
     Dosage: 40 MG
     Route: 048
  5. SPIRIVA [Suspect]
     Indication: CHRONIC OBSTRUCTIVE PULMONARY DISEASE
     Dosage: 18 MCG
     Route: 055
     Dates: start: 20111201, end: 20120106
  6. PREDNISONE TAB [Concomitant]
     Dosage: 10 MG
     Route: 048
     Dates: start: 20111201, end: 20111201
  7. ADVAIR DISKUS 100/50 [Concomitant]
     Indication: CHRONIC OBSTRUCTIVE PULMONARY DISEASE
     Route: 055
     Dates: start: 20110101

REACTIONS (3)
  - DRY MOUTH [None]
  - URINARY INCONTINENCE [None]
  - DYSGEUSIA [None]
